FAERS Safety Report 6069970-2 (Version None)
Quarter: 2009Q1

REPORT INFORMATION
  Report Type: 
  Country: None (occurrence: None)
  Receive Date: 20090209
  Receipt Date: 20090204
  Transmission Date: 20090719
  Serious: Yes (Hospitalization)
  Sender: FDA-Public Use
  Company Number: FR-BAYER-200814680GPV

PATIENT
  Age: 66 Year
  Sex: Female
  Weight: 46 kg

DRUGS (6)
  1. FLUDARABINE PHOSPHATE [Suspect]
     Indication: B-CELL SMALL LYMPHOCYTIC LYMPHOMA
     Route: 048
     Dates: start: 20080118
  2. FLUDARABINE PHOSPHATE [Suspect]
     Route: 048
     Dates: start: 20080216
  3. CYCLOPHOSPHAMIDE [Suspect]
     Indication: B-CELL SMALL LYMPHOCYTIC LYMPHOMA
     Route: 048
     Dates: start: 20080216
  4. CYCLOPHOSPHAMIDE [Suspect]
     Route: 048
     Dates: start: 20080118
  5. RITUXIMAB [Suspect]
     Indication: B-CELL SMALL LYMPHOCYTIC LYMPHOMA
     Route: 042
     Dates: start: 20080214, end: 20080214
  6. RITUXIMAB [Suspect]
     Route: 042
     Dates: start: 20080117, end: 20080117

REACTIONS (1)
  - PLEURAL EFFUSION [None]
